FAERS Safety Report 21440215 (Version 1)
Quarter: 2022Q4

REPORT INFORMATION
  Report Type: Spontaneous
  Country: US (occurrence: US)
  Receive Date: 20221011
  Receipt Date: 20221011
  Transmission Date: 20230113
  Serious: Yes (Other)
  Sender: FDA-Public Use
  Company Number: US-AMNEAL PHARMACEUTICALS-2021-AMRX-05436

PATIENT
  Sex: Female

DRUGS (2)
  1. LIORESAL [Suspect]
     Active Substance: BACLOFEN
     Indication: Muscle spasticity
     Dosage: UNK, \DAY; DOSE REPORTED AS ^VERY LOW, LIKE 72 SOMETHING^
     Route: 037
  2. BACLOFEN [Concomitant]
     Active Substance: BACLOFEN
     Dosage: UNK, 4X/DAY
     Route: 048

REACTIONS (2)
  - Mobility decreased [Unknown]
  - Device issue [Recovered/Resolved]

NARRATIVE: CASE EVENT DATE: 20210101
